FAERS Safety Report 5602538-8 (Version None)
Quarter: 2008Q1

REPORT INFORMATION
  Report Type: 
  Country: None (occurrence: None)
  Receive Date: 20080125
  Receipt Date: 20080114
  Transmission Date: 20080703
  Serious: Yes (Other)
  Sender: FDA-Public Use
  Company Number: B0504807A

PATIENT
  Age: 82 Year
  Sex: Female

DRUGS (8)
  1. AUGMENTIN '125' [Suspect]
     Indication: DRUG USE FOR UNKNOWN INDICATION
     Dosage: 1G THREE TIMES PER DAY
     Route: 048
     Dates: start: 20071116, end: 20071124
  2. COAPROVEL [Concomitant]
     Route: 065
     Dates: start: 20070501, end: 20071117
  3. AMLOR [Concomitant]
     Route: 065
     Dates: start: 20070501
  4. SOTALOL HCL [Concomitant]
     Route: 065
     Dates: start: 20070501
  5. PREVISCAN [Concomitant]
     Route: 065
     Dates: start: 20070501
  6. OFLOCET [Concomitant]
     Route: 065
     Dates: start: 20071115
  7. CHEMOTHERAPY [Concomitant]
     Indication: GASTRIC CANCER
     Route: 065
     Dates: start: 20070724
  8. GENTAMICIN [Concomitant]
     Route: 065
     Dates: start: 20071115

REACTIONS (3)
  - FUNGAL INFECTION [None]
  - HYPOTENSION [None]
  - RASH MORBILLIFORM [None]
